FAERS Safety Report 4473486-4 (Version None)
Quarter: 2004Q3

REPORT INFORMATION
  Report Type: 
  Country: None (occurrence: None)
  Receive Date: 20040909
  Receipt Date: 20040608
  Transmission Date: 20050211
  Serious: Yes (Hospitalization)
  Sender: FDA-Public Use
  Company Number: A03200401828

PATIENT
  Age: 63 Year
  Sex: Male
  Weight: 94.3482 kg

DRUGS (1)
  1. ELOXATIN [Suspect]
     Dosage: 145 MG Q3W - INTRAVENOUS NOS
     Route: 042
     Dates: start: 20040128, end: 20040128

REACTIONS (7)
  - BLOOD PRESSURE DECREASED [None]
  - CHILLS [None]
  - DIARRHOEA [None]
  - FLUSHING [None]
  - HEART RATE INCREASED [None]
  - PYREXIA [None]
  - RASH PRURITIC [None]
